FAERS Safety Report 24424827 (Version 2)
Quarter: 2024Q4

REPORT INFORMATION
  Report Type: Report from Study
  Country: US (occurrence: US)
  Receive Date: 20241010
  Receipt Date: 20241023
  Transmission Date: 20250115
  Serious: Yes (Hospitalization, Other)
  Sender: ALEXION PHARMACEUTICALS
  Company Number: US-AstraZeneca-CH-00717708A

PATIENT
  Age: 22 Year
  Weight: 67.12 kg

DRUGS (8)
  1. SOLIRIS [Suspect]
     Active Substance: ECULIZUMAB
     Indication: Neuromyelitis optica spectrum disorder
     Route: 065
  2. SOLIRIS [Suspect]
     Active Substance: ECULIZUMAB
  3. SOLIRIS [Suspect]
     Active Substance: ECULIZUMAB
     Route: 065
  4. SOLIRIS [Suspect]
     Active Substance: ECULIZUMAB
  5. SYNTHROID [Concomitant]
     Active Substance: LEVOTHYROXINE SODIUM
     Dosage: 112 MICROGRAM
  6. SYNTHROID [Concomitant]
     Active Substance: LEVOTHYROXINE SODIUM
     Dosage: 112 MICROGRAM
  7. SYNTHROID [Concomitant]
     Active Substance: LEVOTHYROXINE SODIUM
     Dosage: 112 MICROGRAM
  8. SYNTHROID [Concomitant]
     Active Substance: LEVOTHYROXINE SODIUM
     Dosage: 112 MICROGRAM

REACTIONS (6)
  - Multiple sclerosis [Unknown]
  - Hypoaesthesia [Not Recovered/Not Resolved]
  - Magnetic resonance imaging abnormal [Unknown]
  - Intervertebral disc degeneration [Unknown]
  - Anxiety [Unknown]
  - Insurance issue [Unknown]
